FAERS Safety Report 6135979-3 (Version None)
Quarter: 2009Q1

REPORT INFORMATION
  Report Type: 
  Country: None (occurrence: None)
  Receive Date: 20090329
  Receipt Date: 20081002
  Transmission Date: 20090719
  Serious: No
  Sender: FDA-Public Use
  Company Number: US-BAUSCH-2008BL004243

PATIENT
  Age: 43 Year
  Sex: Female

DRUGS (2)
  1. LOTEMAX [Suspect]
     Indication: CONJUNCTIVITIS
     Route: 047
     Dates: start: 20080929
  2. XANAX /USA/ [Suspect]
     Indication: ANXIETY
     Route: 048
     Dates: start: 20080929

REACTIONS (2)
  - DRUG INTERACTION [None]
  - INSOMNIA [None]
